FAERS Safety Report 4904439-7 (Version None)
Quarter: 2006Q1

REPORT INFORMATION
  Report Type: 
  Country: None (occurrence: None)
  Receive Date: 20060208
  Receipt Date: 20050906
  Transmission Date: 20060701
  Serious: No
  Sender: FDA-Public Use
  Company Number: US-GLAXOSMITHKLINE-A0573138A

PATIENT
  Age: 75 Year
  Sex: Female

DRUGS (3)
  1. PAROXETINE HCL [Suspect]
     Dosage: 10MG PER DAY
     Route: 048
     Dates: start: 20050627
  2. PAXIL CR [Suspect]
     Route: 048
  3. SYNTHROID [Concomitant]

REACTIONS (4)
  - ASTHENIA [None]
  - DRUG INEFFECTIVE [None]
  - FATIGUE [None]
  - INSOMNIA [None]
